FAERS Safety Report 9369847 (Version 5)
Quarter: 2015Q4

REPORT INFORMATION
  Report Type: Spontaneous
  Country: US (occurrence: US)
  Receive Date: 20130626
  Receipt Date: 20151130
  Transmission Date: 20160305
  Serious: Yes (Hospitalization, Disabling)
  Sender: FDA-Public Use
  Company Number: US-ROCHE-1241497

PATIENT
  Sex: Male

DRUGS (8)
  1. BABY ASPIRIN [Concomitant]
     Active Substance: ASPIRIN
  2. GABAPENTIN. [Concomitant]
     Active Substance: GABAPENTIN
     Route: 065
  3. PEGASYS [Suspect]
     Active Substance: PEGINTERFERON ALFA-2A
     Indication: HEPATITIS C
     Route: 065
     Dates: start: 20120507
  4. RIBAVIRIN. [Suspect]
     Active Substance: RIBAVIRIN
     Indication: HEPATITIS C
  5. PEGASYS [Suspect]
     Active Substance: PEGINTERFERON ALFA-2A
     Indication: HEPATITIS B
     Route: 065
     Dates: end: 20120419
  6. AMLODIPINE [Concomitant]
     Active Substance: AMLODIPINE BESYLATE
  7. RIBAVIRIN. [Suspect]
     Active Substance: RIBAVIRIN
     Indication: HEPATITIS B
     Route: 065
  8. XANAX [Concomitant]
     Active Substance: ALPRAZOLAM

REACTIONS (12)
  - Tendon disorder [Unknown]
  - Urinary incontinence [Recovered/Resolved]
  - Neuropathy peripheral [Not Recovered/Not Resolved]
  - Feeding disorder [Unknown]
  - Cerebrovascular accident [Unknown]
  - Faecal incontinence [Recovered/Resolved]
  - Pneumonia [Unknown]
  - Anoxia [Unknown]
  - Neurological symptom [Unknown]
  - Paralysis [Not Recovered/Not Resolved]
  - Cerebral disorder [Recovered/Resolved with Sequelae]
  - Hypertension [Not Recovered/Not Resolved]
